FAERS Safety Report 7013483-8 (Version None)
Quarter: 2010Q3

REPORT INFORMATION
  Report Type: 
  Country: None (occurrence: None)
  Receive Date: 20100924
  Receipt Date: 20100920
  Transmission Date: 20110219
  Serious: No
  Sender: FDA-Public Use
  Company Number: US-PFIZER INC-2010119978

PATIENT
  Sex: Male
  Weight: 79.365 kg

DRUGS (4)
  1. XANAX [Suspect]
     Indication: ANXIETY
     Dosage: 0.5 MG, 1X/DAY
     Route: 048
  2. XANAX [Suspect]
     Indication: SLEEP DISORDER
  3. WELLBUTRIN [Concomitant]
     Indication: DEPRESSION
     Dosage: 125 MG, 1X/DAY
     Route: 048
     Dates: start: 20090101
  4. WELLBUTRIN [Concomitant]
     Indication: ANXIETY

REACTIONS (1)
  - DRUG INEFFECTIVE [None]
